FAERS Safety Report 14383943 (Version 2)
Quarter: 2018Q1

REPORT INFORMATION
  Report Type: Spontaneous
  Country: US (occurrence: US)
  Receive Date: 20180115
  Receipt Date: 20180125
  Transmission Date: 20180509
  Serious: Yes (Other)
  Sender: FDA-Public Use
  Company Number: US-ASTELLAS-2017US038755

PATIENT
  Sex: Male

DRUGS (1)
  1. XTANDI [Suspect]
     Active Substance: ENZALUTAMIDE
     Indication: PROSTATE CANCER
     Route: 065

REACTIONS (10)
  - Nasal congestion [Unknown]
  - Nasopharyngitis [Unknown]
  - Back pain [Unknown]
  - Hot flush [Not Recovered/Not Resolved]
  - Back disorder [Unknown]
  - Blood pressure abnormal [Unknown]
  - Blood disorder [Unknown]
  - Dyspnoea [Unknown]
  - Neck pain [Unknown]
  - Cough [Not Recovered/Not Resolved]
